FAERS Safety Report 23794729 (Version 2)
Quarter: 2024Q2

REPORT INFORMATION
  Report Type: Spontaneous
  Country: US (occurrence: US)
  Receive Date: 20240429
  Receipt Date: 20240513
  Transmission Date: 20240716
  Serious: No
  Sender: FDA-Public Use
  Company Number: US-PFIZER INC-202400071969

PATIENT
  Age: 69 Year
  Sex: Male
  Weight: 102.04 kg

DRUGS (4)
  1. BRAFTOVI [Suspect]
     Active Substance: ENCORAFENIB
     Indication: Non-small cell lung cancer
     Dosage: 75MG 4 PILLS A DAY
     Dates: start: 20240324
  2. BRAFTOVI [Suspect]
     Active Substance: ENCORAFENIB
     Dosage: TAKING 6 BRAFTOVI (75 MG)
     Dates: start: 20240313
  3. BRAFTOVI [Suspect]
     Active Substance: ENCORAFENIB
     Dosage: ON TUES MORNING I DID 5 BRAF
     Dates: start: 20240326
  4. BRAFTOVI [Suspect]
     Active Substance: ENCORAFENIB
     Dosage: DOING 3 PILLS DAILY

REACTIONS (5)
  - Vision blurred [Unknown]
  - Extrasystoles [Recovered/Resolved]
  - Rash [Unknown]
  - Limb discomfort [Unknown]
  - Off label use [Unknown]

NARRATIVE: CASE EVENT DATE: 20240313
